FAERS Safety Report 17435151 (Version 1)
Quarter: 2020Q1

REPORT INFORMATION
  Report Type: Spontaneous
  Country: AU (occurrence: AU)
  Receive Date: 20200219
  Receipt Date: 20200219
  Transmission Date: 20200409
  Serious: Yes (Hospitalization)
  Sender: FDA-Public Use
  Company Number: AU-MYLANLABS-2020M1018307

PATIENT
  Age: 65 Year
  Sex: Female

DRUGS (4)
  1. EPINEPHRINE. [Concomitant]
     Active Substance: EPINEPHRINE
     Indication: ANAPHYLAXIS TREATMENT
     Dosage: 1:1000 EPINEPHRINE VIA AN AUTOINJECTOR
     Route: 030
  2. EPINEPHRINE. [Suspect]
     Active Substance: EPINEPHRINE
     Indication: ANAPHYLAXIS TREATMENT
     Dosage: 1:1000 EPINEPHRINE INADVERTENTLY ADMINISTERED INTRAVENOUSLY INSTEAD OF BEING NEBULISED
     Route: 042
  3. HYDROCORTISONE. [Concomitant]
     Active Substance: HYDROCORTISONE
     Indication: ANAPHYLAXIS TREATMENT
     Dosage: 100 MILLIGRAM
     Route: 042
  4. SALBUTAMOL [Concomitant]
     Active Substance: ALBUTEROL
     Indication: ANAPHYLAXIS TREATMENT
     Dosage: NEBULISED

REACTIONS (13)
  - Hypertension [Recovered/Resolved]
  - Palpitations [Recovered/Resolved]
  - Incorrect route of product administration [Recovered/Resolved]
  - Myocardial necrosis [Recovered/Resolved]
  - Wrong technique in product usage process [Recovered/Resolved]
  - Headache [Recovered/Resolved]
  - Myocardial ischaemia [Recovered/Resolved]
  - Presyncope [Recovered/Resolved]
  - Product dispensing issue [Recovered/Resolved]
  - Accidental overdose [Recovered/Resolved]
  - Sinus tachycardia [Recovered/Resolved]
  - Anxiety [Recovered/Resolved]
  - Ventricular tachycardia [Recovered/Resolved]
